FAERS Safety Report 10143428 (Version 1)
Quarter: 2014Q2

REPORT INFORMATION
  Report Type: Spontaneous
  Country: JP (occurrence: JP)
  Receive Date: 20140430
  Receipt Date: 20140430
  Transmission Date: 20141212
  Serious: Yes (Death)
  Sender: FDA-Public Use
  Company Number: JP-MALLINCKRODT-T201402007

PATIENT
  Age: 61 Year
  Sex: Male
  Weight: 42 kg

DRUGS (5)
  1. METHADONE [Suspect]
     Indication: CANCER PAIN
     Dosage: 5 MG (10 MG DAILY DOSE)
     Route: 048
     Dates: start: 20131108, end: 20140122
  2. OXINORM [Concomitant]
     Dosage: 5 MG, PRN
     Route: 048
     Dates: start: 20131112
  3. LYRICA [Concomitant]
     Dosage: 100 MG, UNK
     Route: 048
     Dates: start: 20130412, end: 20140120
  4. UBRETID [Concomitant]
     Dosage: 5 MG, UNK
     Route: 048
     Dates: start: 20131012, end: 20140122
  5. HARNAL [Concomitant]
     Dosage: 0.2 MG, UNK
     Route: 048
     Dates: end: 20140122

REACTIONS (1)
  - Rectal cancer [Fatal]
